FAERS Safety Report 8851749 (Version 1)
Quarter: 2012Q4

REPORT INFORMATION
  Report Type: Spontaneous
  Country: US (occurrence: None)
  Receive Date: 20121018
  Receipt Date: 20121018
  Transmission Date: 20130627
  Serious: Yes (Life-Threatening, Hospitalization, Disabling, Other)
  Sender: FDA-Public Use
  Company Number: None

PATIENT
  Age: 50 Year
  Sex: Female
  Weight: 70.31 kg

DRUGS (1)
  1. OPANA ER 30MG [Suspect]
     Dosage: 30 MG EVERY 12 HOURS PO
     Route: 048
     Dates: start: 20111220, end: 20121012

REACTIONS (1)
  - Thrombotic thrombocytopenic purpura [None]
